FAERS Safety Report 5792965-0 (Version None)
Quarter: 2008Q2

REPORT INFORMATION
  Report Type: 
  Country: None (occurrence: None)
  Receive Date: 20080627
  Receipt Date: 20080618
  Transmission Date: 20081010
  Serious: Yes (Other)
  Sender: FDA-Public Use
  Company Number: US-TEVA-172803USA

PATIENT
  Sex: Female

DRUGS (15)
  1. CLOZAPINE [Suspect]
     Indication: SCHIZOAFFECTIVE DISORDER
     Route: 048
     Dates: end: 20050928
  2. CLOZAPINE [Suspect]
     Dates: start: 20050901, end: 20080601
  3. AZAPROPAZONE [Concomitant]
  4. BENZTROPINE MESYLATE [Concomitant]
  5. SERTRALINE [Concomitant]
  6. METFORMIN HCL [Concomitant]
  7. GLIBENCLAMIDE [Concomitant]
  8. LEVOTHYROXINE SODIUM [Concomitant]
  9. PROVASTIN [Concomitant]
  10. ESOMEPRAZOLE MAGNESIUM [Concomitant]
  11. RANITIDINE HCL [Concomitant]
  12. RANITIDINE HCL [Concomitant]
  13. ASPIRIN [Concomitant]
  14. VITAMINS [Concomitant]
  15. SUPPLEMENTS (NOS) [Concomitant]

REACTIONS (1)
  - METASTASES TO BREAST [None]
